FAERS Safety Report 7305116-8 (Version None)
Quarter: 2011Q1

REPORT INFORMATION
  Report Type: 
  Country: None (occurrence: None)
  Receive Date: 20110222
  Receipt Date: 20110210
  Transmission Date: 20110831
  Serious: Yes (Hospitalization)
  Sender: FDA-Public Use
  Company Number: FR-PFIZER INC-2011026004

PATIENT
  Age: 46 Year
  Sex: Female

DRUGS (2)
  1. RAPAMUNE [Suspect]
     Route: 048
  2. CELLCEPT [Suspect]
     Route: 048

REACTIONS (2)
  - IMPAIRED HEALING [None]
  - DIABETIC FOOT [None]
